FAERS Safety Report 8593356-X (Version None)
Quarter: 2012Q3

REPORT INFORMATION
  Report Type: 
  Country: None (occurrence: None)
  Receive Date: 20120814
  Receipt Date: 20120625
  Transmission Date: 20120928
  Serious: No
  Sender: FDA-Public Use
  Company Number: US-ASTRAZENECA-2012SE43031

PATIENT
  Age: 4 Year
  Sex: Male
  Weight: 2.7 kg

DRUGS (10)
  1. SINGULAIR [Concomitant]
  2. FLUTICASONE PROPIONATE [Concomitant]
  3. ORAPRED [Concomitant]
  4. CLONIDINE [Concomitant]
  5. PROBIOTICS [Concomitant]
  6. NEXIUM [Suspect]
     Route: 048
  7. NASONEX [Concomitant]
  8. MELATONIN [Concomitant]
  9. MULTIVITE [Concomitant]
  10. XOPENEX [Concomitant]

REACTIONS (7)
  - VOMITING [None]
  - UNDERDOSE [None]
  - SENSORY DISTURBANCE [None]
  - INTENTIONAL DRUG MISUSE [None]
  - DRUG INEFFECTIVE [None]
  - RETCHING [None]
  - DYSPHAGIA [None]
